FAERS Safety Report 5356528-3 (Version None)
Quarter: 2007Q2

REPORT INFORMATION
  Report Type: 
  Country: None (occurrence: None)
  Receive Date: 20070530
  Receipt Date: 20061108
  Transmission Date: 20071010
  Serious: Yes (Other)
  Sender: FDA-Public Use
  Company Number: US200608006005

PATIENT
  Age: 32 Year
  Sex: Male
  Weight: 97.5 kg

DRUGS (5)
  1. ZYPREXA [Suspect]
     Dosage: 15 MG
     Dates: start: 20031201, end: 20040301
  2. HALDOL SOLUTAB [Concomitant]
  3. SEROQUEL [Concomitant]
  4. RISPERDAL /SWE/ (RISPERIDONE) [Concomitant]
  5. LITHIUM CARBONATE [Concomitant]

REACTIONS (2)
  - DIABETES MELLITUS [None]
  - DIABETIC COMA [None]
